FAERS Safety Report 5984770-7 (Version None)
Quarter: 2008Q4

REPORT INFORMATION
  Report Type: 
  Country: None (occurrence: None)
  Receive Date: 20081208
  Receipt Date: 20081124
  Transmission Date: 20090506
  Serious: Yes (Death)
  Sender: FDA-Public Use
  Company Number: ZA-B.I. PHARMACEUTICALS,INC./RIDGEFIELD-2008-DE-07136GD

PATIENT

DRUGS (2)
  1. NEVIRAPINE [Suspect]
     Indication: HUMAN IMMUNODEFICIENCY VIRUS TRANSMISSION
     Dosage: .6ML
     Route: 048
  2. NEVIRAPINE [Suspect]
     Indication: PROPHYLAXIS
     Route: 064

REACTIONS (1)
  - DEATH [None]
